FAERS Safety Report 14891812 (Version 3)
Quarter: 2018Q3

REPORT INFORMATION
  Report Type: Report from Study
  Country: None (occurrence: DE)
  Receive Date: 20180514
  Receipt Date: 20180814
  Transmission Date: 20181010
  Serious: Yes (Hospitalization)
  Sender: FDA-Public Use
  Company Number: DE-ABBVIE-18K-062-2350097-00

PATIENT
  Age: 61 Year
  Sex: Male
  Weight: 85 kg

DRUGS (7)
  1. VALSACOR [Suspect]
     Active Substance: VALSARTAN
     Indication: HYPERTENSION
     Route: 065
     Dates: end: 20170711
  2. HUMIRA [Suspect]
     Active Substance: ADALIMUMAB
     Route: 058
     Dates: start: 2017, end: 20170711
  3. FUMADERM [Suspect]
     Active Substance: CALCIUM MONOETHYLFUMARATE\DIMETHYL FUMARATE\MAGNESIUM MONOETHYLFUMARATE\ZINC MONOETHYLFUMARATE
     Indication: PSORIATIC ARTHROPATHY
     Dosage: MORE THAN ONE WEEK
     Route: 065
     Dates: start: 2017, end: 2017
  4. CORTISONE [Concomitant]
     Active Substance: CORTISONE\HYDROCORTISONE
     Indication: RASH PUSTULAR
     Dosage: SMALL AMOUNT
     Dates: start: 2017
  5. HUMIRA [Suspect]
     Active Substance: ADALIMUMAB
     Indication: PSORIATIC ARTHROPATHY
     Route: 058
     Dates: start: 20170109, end: 2017
  6. PHYSIOGEL [Concomitant]
     Indication: RASH PUSTULAR
     Dates: start: 2017
  7. HUMIRA [Suspect]
     Active Substance: ADALIMUMAB
     Route: 058
     Dates: start: 20180520

REACTIONS (12)
  - Rash generalised [Recovering/Resolving]
  - Hypertension [Recovered/Resolved]
  - Impaired healing [Not Recovered/Not Resolved]
  - Pruritus generalised [Not Recovered/Not Resolved]
  - Rash pustular [Not Recovered/Not Resolved]
  - Gastrointestinal disorder [Recovered/Resolved]
  - Dermatitis acneiform [Not Recovered/Not Resolved]
  - Skin induration [Unknown]
  - Nodular rash [Recovering/Resolving]
  - Pruritus generalised [Recovered/Resolved]
  - Skin wound [Not Recovered/Not Resolved]
  - Pulpitis dental [Recovered/Resolved]

NARRATIVE: CASE EVENT DATE: 201703
